FAERS Safety Report 11105941 (Version 1)
Quarter: 2015Q2

REPORT INFORMATION
  Report Type: Spontaneous
  Country: US (occurrence: None)
  Receive Date: 20150508
  Receipt Date: 20150508
  Transmission Date: 20150821
  Serious: Yes (Hospitalization)
  Sender: FDA-Public Use
  Company Number: 1224850-2015-00017

PATIENT
  Age: 66 Year
  Sex: Male
  Weight: 100.25 kg

DRUGS (31)
  1. DELFLEX PD SOLUTION [Concomitant]
  2. MAGNESIUM OXIDE. [Concomitant]
     Active Substance: MAGNESIUM OXIDE
  3. OMEPRAZOLE. [Concomitant]
     Active Substance: OMEPRAZOLE
  4. PHOSLO [Suspect]
     Active Substance: CALCIUM ACETATE
     Indication: BONE METABOLISM DISORDER
     Route: 048
  5. LIBERTY CYCLER [Concomitant]
     Active Substance: DEVICE
  6. ACETAMINOPHEN-CODEINE [Concomitant]
     Active Substance: ACETAMINOPHEN\CODEINE PHOSPHATE
  7. BENADRYL [Concomitant]
     Active Substance: DIPHENHYDRAMINE HYDROCHLORIDE
  8. CALCIUM ACETATE. [Concomitant]
     Active Substance: CALCIUM ACETATE
  9. MINOXIDIL. [Concomitant]
     Active Substance: MINOXIDIL
  10. SIMETHICONE [Concomitant]
     Active Substance: DIMETHICONE\SILICON DIOXIDE\SIMETHICONE
  11. LISINOPRIL. [Concomitant]
     Active Substance: LISINOPRIL
  12. NIACIN. [Concomitant]
     Active Substance: NIACIN
  13. METOLAZONE. [Concomitant]
     Active Substance: METOLAZONE
  14. EUCERIN [Concomitant]
     Active Substance: ENSULIZOLE\EUCERIN\OCTINOXATE\OCTISALATE\TITANIUM DIOXIDE\ZINC OXIDE
  15. FUROSEMIDE. [Concomitant]
     Active Substance: FUROSEMIDE
  16. HYDROCODONE BITARTRATE AND ACETAMINOPHEN [Concomitant]
     Active Substance: ACETAMINOPHEN\HYDROCODONE BITARTRATE
  17. NOVOLOG [Concomitant]
     Active Substance: INSULIN ASPART
  18. CYCLOBENZAPRINE [Concomitant]
     Active Substance: CYCLOBENZAPRINE
  19. CARVEDILOL. [Concomitant]
     Active Substance: CARVEDILOL
  20. HYDROXYZINE HCL [Concomitant]
     Active Substance: HYDROXYZINE HYDROCHLORIDE
  21. TRAMADOL [Concomitant]
     Active Substance: TRAMADOL
  22. AMLODIPINE [Concomitant]
     Active Substance: AMLODIPINE BESYLATE
  23. ASPIRIN. [Concomitant]
     Active Substance: ASPIRIN
  24. CLOPIDOGREL [Concomitant]
     Active Substance: CLOPIDOGREL BISULFATE
  25. TEMAZEPAM. [Concomitant]
     Active Substance: TEMAZEPAM
  26. LIBERTY CYCLER CASSETTE [Concomitant]
     Active Substance: DEVICE
  27. OMEGA-3 ACIDS [Concomitant]
     Active Substance: OMEGA-3 FATTY ACIDS
  28. RENA-VITE [Concomitant]
     Active Substance: VITAMINS
  29. CARGEDILOL [Concomitant]
  30. NITROSTAT [Concomitant]
     Active Substance: NITROGLYCERIN
  31. LANTUS [Concomitant]
     Active Substance: INSULIN GLARGINE

REACTIONS (10)
  - Fluid overload [None]
  - Injury [None]
  - Hypotension [None]
  - Treatment noncompliance [None]
  - Confusional state [None]
  - Peritonitis [None]
  - Dyspnoea [None]
  - Peritoneal dialysis complication [None]
  - Oedema [None]
  - Blood pressure systolic increased [None]

NARRATIVE: CASE EVENT DATE: 20150408
